FAERS Safety Report 6649530-2 (Version None)
Quarter: 2010Q1

REPORT INFORMATION
  Report Type: 
  Country: None (occurrence: None)
  Receive Date: 20100324
  Receipt Date: 20100324
  Transmission Date: 20100710
  Serious: Yes (Hospitalization)
  Sender: FDA-Public Use
  Company Number: None

PATIENT
  Sex: Male
  Weight: 80 kg

DRUGS (6)
  1. CISPLATIN [Suspect]
     Dosage: 110 MG
     Dates: end: 20100303
  2. ETOPOSIDE [Suspect]
     Dosage: 450 MG
     Dates: end: 20100305
  3. DIAZEPAM [Concomitant]
  4. DILANTIN [Concomitant]
  5. METOPROLOL TARTRATE [Concomitant]
  6. VICODIN [Concomitant]

REACTIONS (3)
  - DELIRIUM [None]
  - FALL [None]
  - FATIGUE [None]
